FAERS Safety Report 15499995 (Version 1)
Quarter: 2018Q4

REPORT INFORMATION
  Report Type: Spontaneous
  Country: US (occurrence: US)
  Receive Date: 20181015
  Receipt Date: 20181015
  Transmission Date: 20190205
  Serious: No
  Sender: FDA-Public Use
  Company Number: US-UNIQUE PHARMACEUTICAL LABORATORIES-2018RIS00144

PATIENT
  Age: 63 Year
  Sex: Male
  Weight: 90.7 kg

DRUGS (12)
  1. CETIRIZINE HYDROCHLORIDE. [Suspect]
     Active Substance: CETIRIZINE HYDROCHLORIDE
     Indication: SINUS CONGESTION
  2. CETIRIZINE HYDROCHLORIDE. [Suspect]
     Active Substance: CETIRIZINE HYDROCHLORIDE
     Indication: HYPERSENSITIVITY
     Dosage: 10 MG, 1X/DAY
     Route: 048
     Dates: start: 20180304
  3. PANTROPRAZOLE [Concomitant]
  4. MUCINEX [Suspect]
     Active Substance: GUAIFENESIN
     Dosage: 1 DOSAGE UNIT, 2X/DAY
     Dates: start: 20180304, end: 20180312
  5. DILTIAZEM. [Concomitant]
     Active Substance: DILTIAZEM
     Dosage: 30 MG, 2X/DAY
     Dates: start: 201802
  6. DILTIAZEM. [Concomitant]
     Active Substance: DILTIAZEM
     Dosage: 180 MG, 1X/DAY
     Dates: end: 201802
  7. XANAX [Concomitant]
     Active Substance: ALPRAZOLAM
  8. FLECAINIDE [Concomitant]
     Active Substance: FLECAINIDE
     Dosage: 50 MG, 2X/DAY
  9. TAMSULOSIN [Concomitant]
     Active Substance: TAMSULOSIN
  10. CETIRIZINE HYDROCHLORIDE. [Suspect]
     Active Substance: CETIRIZINE HYDROCHLORIDE
     Indication: THROAT IRRITATION
  11. XALATAN [Concomitant]
     Active Substance: LATANOPROST
     Route: 047
  12. XARELTO [Concomitant]
     Active Substance: RIVAROXABAN
     Dosage: 20 MG, 1X/DAY

REACTIONS (8)
  - Weight decreased [Recovered/Resolved]
  - Dyspnoea [Recovered/Resolved]
  - Insomnia [Recovered/Resolved]
  - Heart rate decreased [Recovered/Resolved]
  - Hypertension [Recovered/Resolved]
  - Decreased appetite [Recovered/Resolved]
  - Asthenia [Recovered/Resolved]
  - Feeling abnormal [Recovered/Resolved]

NARRATIVE: CASE EVENT DATE: 201803
